FAERS Safety Report 7291027-3 (Version None)
Quarter: 2011Q1

REPORT INFORMATION
  Report Type: 
  Country: None (occurrence: None)
  Receive Date: 20110214
  Receipt Date: 20110210
  Transmission Date: 20110831
  Serious: Yes (Life-Threatening, Hospitalization, Other)
  Sender: FDA-Public Use
  Company Number: PHHY2011GB10552

PATIENT
  Sex: Male

DRUGS (6)
  1. ZOPICLONE [Suspect]
     Dosage: 60 DF, UNK
     Route: 048
  2. DIAZEPAM [Suspect]
     Indication: SEDATION
     Dosage: 28 DF, UNK
     Route: 048
     Dates: start: 20101017
  3. REQUIP [Suspect]
     Dosage: 30 DF, UNK
     Route: 048
     Dates: start: 20101017
  4. LORAZEPAM [Suspect]
     Dosage: 30 DF, UNK
     Route: 048
  5. MIRTAZAPINE [Suspect]
     Indication: ANXIETY
     Dosage: 30 DF, UNK
     Route: 048
     Dates: start: 20101017
  6. REQUIP [Suspect]
     Indication: PARKINSON'S DISEASE
     Dosage: 6 MG, QD
     Route: 048
     Dates: start: 20090612

REACTIONS (3)
  - BLOOD BILIRUBIN INCREASED [None]
  - INTENTIONAL OVERDOSE [None]
  - SUICIDE ATTEMPT [None]
